FAERS Safety Report 21493070 (Version 1)
Quarter: 2022Q4

REPORT INFORMATION
  Report Type: Spontaneous
  Country: CA (occurrence: CA)
  Receive Date: 20221021
  Receipt Date: 20221021
  Transmission Date: 20230113
  Serious: Yes (Life-Threatening, Hospitalization, Other)
  Sender: FDA-Public Use
  Company Number: CA-BRACCO-2022CA04497

PATIENT
  Age: 38 Year
  Sex: Male

DRUGS (2)
  1. PROHANCE [Suspect]
     Active Substance: GADOTERIDOL
     Indication: Magnetic resonance imaging
     Dosage: 16 ML, SINGLE
     Route: 042
  2. SERTRALINE [Concomitant]
     Active Substance: SERTRALINE HYDROCHLORIDE

REACTIONS (11)
  - Anxiety [Recovered/Resolved]
  - Aphasia [Recovered/Resolved]
  - Chest discomfort [Recovered/Resolved]
  - Contrast media allergy [Recovered/Resolved]
  - Dyspnoea [Recovered/Resolved]
  - Immobile [Recovered/Resolved]
  - Incontinence [Recovered/Resolved]
  - Micturition urgency [Recovered/Resolved]
  - Muscle contracture [Recovered/Resolved]
  - Muscle spasms [Recovered/Resolved]
  - Tremor [Recovered/Resolved]
